FAERS Safety Report 8031300-4 (Version None)
Quarter: 2012Q1

REPORT INFORMATION
  Report Type: 
  Country: None (occurrence: None)
  Receive Date: 20120109
  Receipt Date: 20110715
  Transmission Date: 20120608
  Serious: Yes (Death, Life-Threatening, Hospitalization, Disabling, Other)
  Sender: FDA-Public Use
  Company Number: US-GLAXOSMITHKLINE-A0937536A

PATIENT
  Age: 58 Year
  Sex: Female
  Weight: 109 kg

DRUGS (19)
  1. DUONEB [Concomitant]
     Dosage: 3ML AS REQUIRED
     Route: 055
  2. FISH OIL [Concomitant]
     Dosage: 1CAP PER DAY
     Route: 048
  3. RANITIDINE [Concomitant]
     Dosage: 150MG TWICE PER DAY
     Route: 048
  4. ALLOPURINOL [Concomitant]
     Dosage: 100MG PER DAY
     Route: 048
  5. MAGNESIUM [Concomitant]
  6. ADCIRCA [Concomitant]
     Dosage: 40MG PER DAY
     Route: 048
  7. ALBUTEROL [Concomitant]
     Dosage: 2PUFF AS REQUIRED
     Route: 055
  8. LORATADINE [Concomitant]
     Dosage: 10MG PER DAY
     Route: 048
  9. PROZAC [Concomitant]
     Dosage: 40MG IN THE MORNING
     Route: 048
  10. TORSEMIDE [Concomitant]
     Dosage: 40MG PER DAY
     Route: 048
  11. SIMVASTATIN [Concomitant]
     Dosage: 10MG AT NIGHT
     Route: 048
  12. TRICOR [Concomitant]
     Dosage: 145MG PER DAY
     Route: 048
  13. VENOFER [Concomitant]
     Route: 042
  14. FLOLAN [Suspect]
     Indication: PULMONARY ARTERIAL HYPERTENSION
     Dosage: 48NGKM SEE DOSAGE TEXT
     Route: 042
     Dates: start: 20091111
  15. OXYGEN [Concomitant]
  16. REQUIP [Concomitant]
     Dosage: 2MG TWICE PER DAY
     Route: 048
  17. CALCIUM + VITAMIN D3 [Concomitant]
     Dosage: 1TAB PER DAY
     Route: 048
  18. HUMULIN R [Concomitant]
     Route: 058
  19. PRILOSEC [Concomitant]
     Dosage: 20MG PER DAY
     Route: 048

REACTIONS (5)
  - SMALL INTESTINAL HAEMORRHAGE [None]
  - DYSPNOEA [None]
  - UPPER RESPIRATORY TRACT INFECTION [None]
  - DEATH [None]
  - ANAEMIA [None]
